APPROVED DRUG PRODUCT: SARISOL NO. 2
Active Ingredient: BUTABARBITAL SODIUM
Strength: 30MG
Dosage Form/Route: TABLET;ORAL
Application: A084719 | Product #002
Applicant: HALSEY DRUG CO INC
Approved: Approved Prior to Jan 1, 1982 | RLD: No | RS: No | Type: DISCN